FAERS Safety Report 24118560 (Version 1)
Quarter: 2024Q3

REPORT INFORMATION
  Report Type: Spontaneous
  Country: IN (occurrence: IN)
  Receive Date: 20240722
  Receipt Date: 20240722
  Transmission Date: 20241017
  Serious: Yes (Other)
  Sender: ALKEM
  Company Number: IN-ALKEM LABORATORIES LIMITED-IN-ALKEM-2024-15664

PATIENT
  Age: 15 Year
  Sex: Female

DRUGS (3)
  1. ISONIAZID [Suspect]
     Active Substance: ISONIAZID
     Indication: Extrapulmonary tuberculosis
     Dosage: UNK
     Route: 065
  2. ISONIAZID [Suspect]
     Active Substance: ISONIAZID
     Indication: Meningitis tuberculous
  3. ISONIAZID [Suspect]
     Active Substance: ISONIAZID
     Indication: Encephalitis

REACTIONS (1)
  - Pancreatitis necrotising [Unknown]
